FAERS Safety Report 13854883 (Version 2)
Quarter: 2018Q1

REPORT INFORMATION
  Report Type: Spontaneous
  Country: GB (occurrence: GB)
  Receive Date: 20170809
  Receipt Date: 20180120
  Transmission Date: 20180508
  Serious: Yes (Life-Threatening, Hospitalization, Other)
  Sender: FDA-Public Use
  Company Number: GB-MICRO LABS LIMITED-BB2017-01118

PATIENT
  Age: 65 Year
  Sex: Female
  Weight: 158 kg

DRUGS (2)
  1. SIMVASTATIN. [Suspect]
     Active Substance: SIMVASTATIN
     Indication: HYPERCHOLESTEROLAEMIA
     Route: 048
  2. ITRACONAZOLE. [Suspect]
     Active Substance: ITRACONAZOLE
     Indication: PRODUCT USED FOR UNKNOWN INDICATION
     Route: 048
     Dates: start: 20170427, end: 201705

REACTIONS (6)
  - Blood urine present [Unknown]
  - Acute kidney injury [Unknown]
  - Flushing [Unknown]
  - Dyspnoea [Unknown]
  - Drug interaction [Unknown]
  - Tremor [Unknown]
